FAERS Safety Report 25202578 (Version 1)
Quarter: 2025Q2

REPORT INFORMATION
  Report Type: Report from Study
  Country: MX (occurrence: MX)
  Receive Date: 20250416
  Receipt Date: 20250416
  Transmission Date: 20250717
  Serious: Yes (Hospitalization)
  Sender: NOVARTIS
  Company Number: MX-002147023-NVSC2025MX036773

PATIENT
  Age: 38 Year
  Sex: Male
  Weight: 95 kg

DRUGS (3)
  1. TASIGNA [Suspect]
     Active Substance: NILOTINIB
     Indication: Chronic myeloid leukaemia
     Route: 048
     Dates: start: 2022, end: 20250214
  2. TASIGNA [Suspect]
     Active Substance: NILOTINIB
     Dosage: 2 (200MG) DOSAGE FORM, Q12H
     Route: 048
  3. PONATINIB [Concomitant]
     Active Substance: PONATINIB
     Indication: Chronic myeloid leukaemia
     Dosage: 45 MG, Q24H (TABLET)
     Route: 048
     Dates: start: 202503

REACTIONS (7)
  - Platelet count decreased [Recovering/Resolving]
  - Haemoglobin decreased [Recovering/Resolving]
  - Decreased immune responsiveness [Recovering/Resolving]
  - Vomiting [Recovered/Resolved]
  - Dyspnoea [Recovered/Resolved]
  - Pyrexia [Recovered/Resolved]
  - Drug effect less than expected [Not Recovered/Not Resolved]

NARRATIVE: CASE EVENT DATE: 20250214
